FAERS Safety Report 6960379-3 (Version None)
Quarter: 2010Q3

REPORT INFORMATION
  Report Type: 
  Country: None (occurrence: None)
  Receive Date: 20100901
  Receipt Date: 20100824
  Transmission Date: 20110219
  Serious: Yes (Other)
  Sender: FDA-Public Use
  Company Number: CA-JNJFOC-20100808144

PATIENT
  Sex: Male
  Weight: 40 kg

DRUGS (1)
  1. REMICADE [Suspect]
     Indication: CROHN'S DISEASE
     Dosage: A TOTAL OF 52 WEEKS
     Route: 042

REACTIONS (3)
  - PALPITATIONS [None]
  - PYREXIA [None]
  - SINUSITIS [None]
